FAERS Safety Report 6983732-0 (Version None)
Quarter: 2010Q3

REPORT INFORMATION
  Report Type: 
  Country: None (occurrence: None)
  Receive Date: 20100914
  Receipt Date: 20090225
  Transmission Date: 20110219
  Serious: No
  Sender: FDA-Public Use
  Company Number: US-WYE-H08128509

PATIENT
  Age: 70 Year
  Sex: Female
  Weight: 79.45 kg

DRUGS (3)
  1. ADVIL LIQUI-GELS [Suspect]
     Indication: ARTHRALGIA
     Dosage: 1-2 CAPLETS TWICE DAILY
     Route: 048
     Dates: start: 20090101
  2. TRIAMTERENE [Concomitant]
  3. METOPROLOL TARTRATE [Concomitant]

REACTIONS (2)
  - CONDITION AGGRAVATED [None]
  - HYPERTENSION [None]
